FAERS Safety Report 11700115 (Version 1)
Quarter: 2015Q4

REPORT INFORMATION
  Report Type: Spontaneous
  Country: FR (occurrence: FR)
  Receive Date: 20151105
  Receipt Date: 20151105
  Transmission Date: 20160304
  Serious: Yes (Hospitalization)
  Sender: FDA-Public Use
  Company Number: FR-ROCHE-1655135

PATIENT
  Age: 57 Year
  Sex: Male

DRUGS (8)
  1. PANTOPRAZOLE [Concomitant]
     Active Substance: PANTOPRAZOLE SODIUM
  2. FLAGYL [Suspect]
     Active Substance: METRONIDAZOLE\METRONIDAZOLE HYDROCHLORIDE
     Indication: INFECTION
     Route: 065
     Dates: start: 20151005, end: 20151012
  3. SERESTA [Concomitant]
     Active Substance: OXAZEPAM
  4. PREVISCAN (FRANCE) [Concomitant]
     Active Substance: FLUINDIONE
  5. AMIODARONE [Concomitant]
     Active Substance: AMIODARONE
  6. NEBIVOLOL. [Concomitant]
     Active Substance: NEBIVOLOL
  7. ROCEPHINE [Suspect]
     Active Substance: CEFTRIAXONE SODIUM
     Indication: INFECTION
     Route: 065
     Dates: start: 20151005, end: 20151012
  8. INEXIUM [Concomitant]
     Active Substance: ESOMEPRAZOLE

REACTIONS (2)
  - Thrombocytopenia [Recovering/Resolving]
  - Pancytopenia [Recovering/Resolving]

NARRATIVE: CASE EVENT DATE: 20151005
